FAERS Safety Report 8044135-3 (Version None)
Quarter: 2012Q1

REPORT INFORMATION
  Report Type: 
  Country: None (occurrence: None)
  Receive Date: 20120113
  Receipt Date: 20120106
  Transmission Date: 20120608
  Serious: Yes (Hospitalization, Other)
  Sender: FDA-Public Use
  Company Number: PHEH2012US000821

PATIENT
  Sex: Male

DRUGS (4)
  1. CYCLOSPORINE [Suspect]
     Dosage: UNK UKN, UNK
  2. EXJADE [Suspect]
     Indication: IRON OVERLOAD
     Dosage: 1500 MG, EVERY DAY
     Route: 048
     Dates: start: 20110913
  3. CYCLOSPORINE [Suspect]
     Dosage: UNK UKN, UNK
  4. CYCLOSPORINE [Suspect]
     Dosage: UNK UKN, UNK

REACTIONS (3)
  - VISUAL IMPAIRMENT [None]
  - RENAL FAILURE [None]
  - WEIGHT DECREASED [None]
